FAERS Safety Report 9882896 (Version 2)
Quarter: 2014Q1

REPORT INFORMATION
  Report Type: Other
  Country: PR (occurrence: US)
  Receive Date: 20140207
  Receipt Date: 20140207
  Transmission Date: 20141002
  Serious: No
  Sender: FDA-Public Use
  Company Number: PR-ACORDA-ACO_38888_2013

PATIENT
  Sex: Female

DRUGS (2)
  1. AMPYRA [Suspect]
     Indication: MULTIPLE SCLEROSIS
     Dosage: 10 MG, Q 12 HRS
     Route: 048
     Dates: start: 20130708, end: 2013
  2. AMPYRA [Suspect]
     Dosage: 10 MG, QD
     Route: 048
     Dates: start: 20131004, end: 2013

REACTIONS (1)
  - Drug ineffective [None]
